FAERS Safety Report 8799400 (Version 1)
Quarter: 2012Q4

REPORT INFORMATION
  Report Type: 
  Country: ES (occurrence: ES)
  Receive Date: 20120919
  Receipt Date: 20120919
  Transmission Date: 20130627
  Serious: Yes (Hospitalization)
  Sender: FDA-Public Use
  Company Number: ES-ROXANE LABORATORIES, INC.-2012-RO-01860RO

PATIENT
  Age: 78 Year
  Sex: Female

DRUGS (4)
  1. CYCLOPHOSPHAMIDE TABLETS USP [Suspect]
     Indication: GLOMERULONEPHRITIS
  2. PREDNISONE [Suspect]
     Indication: GLOMERULONEPHRITIS
     Route: 048
  3. MYCOPHENOLATE MOFETIL [Suspect]
     Indication: GLOMERULONEPHRITIS
     Dosage: 1500 mg
     Route: 048
  4. ENALAPRIL [Concomitant]
     Dosage: 10 mg

REACTIONS (2)
  - Interstitial lung disease [Recovered/Resolved]
  - Gastrointestinal disorder [Unknown]
